FAERS Safety Report 22210651 (Version 2)
Quarter: 2023Q2

REPORT INFORMATION
  Report Type: Spontaneous
  Country: IT (occurrence: IT)
  Receive Date: 20230414
  Receipt Date: 20230609
  Transmission Date: 20230721
  Serious: Yes (Disabling, Other)
  Sender: FDA-Public Use
  Company Number: None

PATIENT
  Age: 45 Year
  Sex: Male
  Weight: 115 kg

DRUGS (11)
  1. HALOPERIDOL DECANOATE [Suspect]
     Active Substance: HALOPERIDOL DECANOATE
     Indication: Psychotic disorder
     Dosage: 50 MG EVERY 14 DAYS + DROPS 33-33-33 + OLANZAPINE 10 MG 0-0-1+ALPRAZOLAM EXTENDED RELEASE 1 MG TABLE
     Route: 030
     Dates: start: 20121030, end: 20151030
  2. RISPERDAL [Suspect]
     Active Substance: RISPERIDONE
     Indication: Product used for unknown indication
     Dosage: 50 DEPOT EVERY 14 DAYS + TALOFEN DROPS 20-20-30 + RISPERIDAL DROPS 2-2-4 MG. TO DATE ONLY RISPERDAL
     Route: 030
  3. RISPERDAL [Suspect]
     Active Substance: RISPERIDONE
     Dosage: 50 DEPOT EVERY 14 DAYS + TALOFEN DROPS 20-20-30 + RISPERIDAL DROPS 2-2-4 MG. TO DATE ONLY RISPERDAL
     Route: 030
     Dates: start: 20221010, end: 20230120
  4. ABILIFY MAINTENA [Suspect]
     Active Substance: ARIPIPRAZOLE
     Indication: Psychotic disorder
     Dosage: MAINTENA 400 MG EVERY 30 DAYS + ARIPIPRAZOLE 15 MG TABLETS 1-0-1 + CLONAZEPAM DROPS 20 AS NEEDED IF
     Route: 030
     Dates: start: 20151001, end: 20210915
  5. CLONAZEPAM [Concomitant]
     Active Substance: CLONAZEPAM
     Dosage: 20 DROPS AS NEEDED IF VISUAL AND AUDITORY HALLUCINATIONS APPEARED
     Dates: start: 20151001, end: 20210915
  6. TALOFEN [Concomitant]
     Active Substance: PROMAZINE HYDROCHLORIDE
     Dosage: 20+20+30 DROPS/DAY
     Dates: start: 20221010, end: 20230120
  7. ARIPIPRAZOLE [Concomitant]
     Active Substance: ARIPIPRAZOLE
     Dates: start: 20151001, end: 20210915
  8. ALPRAZOLAM [Concomitant]
     Active Substance: ALPRAZOLAM
     Dates: start: 20121030, end: 20151030
  9. HALOPERIDOL [Concomitant]
     Active Substance: HALOPERIDOL
     Dates: start: 20121030, end: 20151030
  10. OLANZAPINE [Concomitant]
     Active Substance: OLANZAPINE
     Dates: start: 20121030, end: 20151030
  11. RISPERIDONE [Concomitant]
     Active Substance: RISPERIDONE
     Dates: start: 20221010, end: 20230120

REACTIONS (17)
  - Hallucinations, mixed [Recovered/Resolved]
  - Hallucinations, mixed [Not Recovered/Not Resolved]
  - Erectile dysfunction [Unknown]
  - Emotional poverty [Unknown]
  - Sleep apnoea syndrome [Unknown]
  - Headache [Unknown]
  - Dizziness [Unknown]
  - Lethargy [Unknown]
  - Weight increased [Unknown]
  - Nightmare [Unknown]
  - Eczema [Unknown]
  - Peripheral swelling [Unknown]
  - Libido decreased [Unknown]
  - Hot flush [Unknown]
  - Fatigue [Unknown]
  - Somnolence [Unknown]
  - Hypoaesthesia [Unknown]

NARRATIVE: CASE EVENT DATE: 20150609
